FAERS Safety Report 25181735 (Version 2)
Quarter: 2025Q2

REPORT INFORMATION
  Report Type: Spontaneous
  Country: US (occurrence: US)
  Receive Date: 20250410
  Receipt Date: 20250423
  Transmission Date: 20250717
  Serious: Yes (Other)
  Sender: TEVA
  Company Number: US-TEVA-VS-3317093

PATIENT
  Age: 33 Year
  Sex: Female

DRUGS (4)
  1. LABETALOL [Suspect]
     Active Substance: LABETALOL
     Indication: Atrial fibrillation
     Route: 065
  2. VERAPAMIL [Suspect]
     Active Substance: VERAPAMIL HYDROCHLORIDE
     Indication: Atrial fibrillation
     Route: 065
  3. FLECAINIDE [Suspect]
     Active Substance: FLECAINIDE
     Indication: Atrial fibrillation
     Route: 050
  4. DIGOXIN [Suspect]
     Active Substance: DIGOXIN
     Indication: Atrial fibrillation
     Route: 065

REACTIONS (3)
  - Hypotension [Unknown]
  - Maternal exposure during pregnancy [Unknown]
  - Treatment failure [Unknown]
